FAERS Safety Report 8064686-5 (Version None)
Quarter: 2012Q1

REPORT INFORMATION
  Report Type: 
  Country: None (occurrence: None)
  Receive Date: 20120123
  Receipt Date: 20120117
  Transmission Date: 20120608
  Serious: Yes (Death)
  Sender: FDA-Public Use
  Company Number: US-ASTRAZENECA-2012SE03676

PATIENT
  Age: 21 Year
  Sex: Male

DRUGS (1)
  1. SYMBICORT [Suspect]
     Dosage: UNKNOWN DOSE AND FREQUENCY
     Route: 055

REACTIONS (1)
  - ROAD TRAFFIC ACCIDENT [None]
